FAERS Safety Report 15406338 (Version 1)
Quarter: 2018Q3

REPORT INFORMATION
  Report Type: Spontaneous
  Country: US (occurrence: US)
  Receive Date: 20180920
  Receipt Date: 20180920
  Transmission Date: 20181010
  Serious: No
  Sender: FDA-Public Use
  Company Number: US-JNJFOC-20180836517

PATIENT
  Sex: Female

DRUGS (2)
  1. WOMENS ROGAINE UNSCENTED [Suspect]
     Active Substance: MINOXIDIL
     Indication: ALOPECIA
     Route: 061
  2. WOMENS ROGAINE UNSCENTED [Suspect]
     Active Substance: MINOXIDIL
     Indication: ALOPECIA
     Dosage: APPLIED LIBERALLY TWICE AND THREE TIMES A WEEK
     Route: 061

REACTIONS (6)
  - Wrong technique in product usage process [Unknown]
  - Hair texture abnormal [Unknown]
  - Incorrect dose administered [Unknown]
  - Product packaging issue [Unknown]
  - Seborrhoea [Unknown]
  - Incorrect drug administration duration [Unknown]
